FAERS Safety Report 9559310 (Version 1)
Quarter: 2013Q3

REPORT INFORMATION
  Report Type: Report from Study
  Country: FI (occurrence: FI)
  Receive Date: 20130927
  Receipt Date: 20130927
  Transmission Date: 20140515
  Serious: Yes (Other)
  Sender: FDA-Public Use
  Company Number: PHHY2013FI106286

PATIENT
  Age: 48 Year
  Sex: Female

DRUGS (1)
  1. LEPONEX [Suspect]
     Indication: SCHIZOPHRENIA
     Dosage: 600 MG, DAILY

REACTIONS (3)
  - Subcutaneous abscess [Unknown]
  - White blood cell count increased [Unknown]
  - Diabetes mellitus inadequate control [Unknown]
